FAERS Safety Report 8533652-5 (Version None)
Quarter: 2012Q3

REPORT INFORMATION
  Report Type: 
  Country: None (occurrence: None)
  Receive Date: 20120717
  Receipt Date: 20120717
  Transmission Date: 20120928
  Serious: Yes (Other)
  Sender: FDA-Public Use
  Company Number: None

PATIENT
  Age: 21 Year
  Sex: Female
  Weight: 86.1834 kg

DRUGS (1)
  1. BEYAZ [Suspect]
     Dosage: ONE QD PO
     Route: 048
     Dates: start: 20120420, end: 20120620

REACTIONS (11)
  - HYPOTENSION [None]
  - VERTIGO [None]
  - PAIN IN JAW [None]
  - PAIN IN EXTREMITY [None]
  - URTICARIA [None]
  - ABDOMINAL PAIN [None]
  - PREMENSTRUAL SYNDROME [None]
  - NAUSEA [None]
  - RASH [None]
  - HEADACHE [None]
  - HEART RATE IRREGULAR [None]
